FAERS Safety Report 24592973 (Version 1)
Quarter: 2024Q4

REPORT INFORMATION
  Report Type: Spontaneous
  Country: US (occurrence: US)
  Receive Date: 20241108
  Receipt Date: 20241108
  Transmission Date: 20250115
  Serious: No
  Sender: XERIS PHARMACEUTICALS
  Company Number: US-BRIAN CONNER SVP QUALITY AND CHIEF COMPLIANCE OFFICER-2023XER02206

PATIENT
  Age: 71 Year
  Sex: Female
  Weight: 111.11 kg

DRUGS (6)
  1. GVOKE [Suspect]
     Active Substance: GLUCAGON
     Indication: Hypoglycaemia
     Dosage: 1 MG AT 2:30 AM
     Route: 058
     Dates: start: 20230912, end: 20230912
  2. GVOKE [Suspect]
     Active Substance: GLUCAGON
     Dosage: 1 MG AT 4:30 AM
     Route: 058
     Dates: start: 20230912, end: 20230912
  3. VICTOZA [Concomitant]
     Active Substance: LIRAGLUTIDE
  4. SIMVASTATIN [Concomitant]
     Active Substance: SIMVASTATIN
  5. FUROSEMIDE [Concomitant]
     Active Substance: FUROSEMIDE
  6. NOVOLOG [Concomitant]
     Active Substance: INSULIN ASPART

REACTIONS (2)
  - Drug ineffective [Recovered/Resolved]
  - Product storage error [Recovered/Resolved]

NARRATIVE: CASE EVENT DATE: 20230901
